FAERS Safety Report 8531296-2 (Version None)
Quarter: 2012Q3

REPORT INFORMATION
  Report Type: 
  Country: None (occurrence: None)
  Receive Date: 20120723
  Receipt Date: 20120706
  Transmission Date: 20120928
  Serious: Yes (Other)
  Sender: FDA-Public Use
  Company Number: JP-009507513-1207JPN002351

PATIENT

DRUGS (2)
  1. PEG-INTRON [Suspect]
     Indication: HEPATITIS C
     Dosage: 60-150 MICROGRAM , QW
     Route: 058
  2. REBETOL [Suspect]
     Indication: HEPATITIS C
     Dosage: 600-1000 MILLIGRAMS, QD
     Route: 048

REACTIONS (16)
  - CEREBROVASCULAR DISORDER [None]
  - ANAEMIA [None]
  - NEUROLOGICAL SYMPTOM [None]
  - HYPOTHYROIDISM [None]
  - DIABETES MELLITUS [None]
  - NEUTROPENIA [None]
  - SKIN DISORDER [None]
  - ALANINE AMINOTRANSFERASE INCREASED [None]
  - PULMONARY TUBERCULOSIS [None]
  - HYPERTHYROIDISM [None]
  - THROMBOCYTOPENIA [None]
  - RHEUMATOID ARTHRITIS [None]
  - DEPRESSIVE SYMPTOM [None]
  - MYASTHENIA GRAVIS [None]
  - INTERSTITIAL LUNG DISEASE [None]
  - RETINOPATHY [None]
